FAERS Safety Report 7493228-8 (Version None)
Quarter: 2011Q2

REPORT INFORMATION
  Report Type: 
  Country: None (occurrence: None)
  Receive Date: 20110519
  Receipt Date: 20110519
  Transmission Date: 20111010
  Serious: Yes (Other)
  Sender: FDA-Public Use
  Company Number: None

PATIENT
  Age: 58 Year
  Sex: Female
  Weight: 56.6996 kg

DRUGS (2)
  1. NEXIUM [Suspect]
     Indication: CREST SYNDROME
     Dates: start: 20100315, end: 20110401
  2. DEXILANT [Suspect]
     Indication: EROSIVE OESOPHAGITIS
     Dates: start: 20110401, end: 20110518

REACTIONS (3)
  - FACIAL PAIN [None]
  - TOOTH EXTRACTION [None]
  - TOOTH FRACTURE [None]
